FAERS Safety Report 4554688-5 (Version None)
Quarter: 2005Q1

REPORT INFORMATION
  Report Type: 
  Country: None (occurrence: None)
  Receive Date: 20050118
  Receipt Date: 20040408
  Transmission Date: 20050727
  Serious: Yes (Hospitalization)
  Sender: FDA-Public Use
  Company Number: A0539902A

PATIENT
  Age: 44 Year
  Sex: Male

DRUGS (9)
  1. BC HEADACHE POWDER [Suspect]
     Indication: HEADACHE
     Route: 048
     Dates: start: 19981001
  2. DIMETAPP COLD + ALLERGY [Suspect]
     Indication: NASOPHARYNGITIS
     Route: 048
     Dates: start: 19981001
  3. ROBITUSSIN [Suspect]
     Indication: NASOPHARYNGITIS
     Route: 048
     Dates: start: 19981001
  4. MIDRIN [Suspect]
  5. ALKA SELTZER PLUS COLD [Suspect]
     Route: 048
  6. VERAPAMIL [Concomitant]
     Indication: HYPERTENSION
     Route: 048
  7. ZESTORETIC [Concomitant]
     Indication: HYPERTENSION
     Route: 048
  8. ALLOPURINOL [Concomitant]
     Indication: GOUT
  9. BC MULTI-SYMPTOM ALLERGY SINUS COLD [Concomitant]
     Indication: NASOPHARYNGITIS
     Route: 048
     Dates: start: 19981001

REACTIONS (13)
  - ASTHENIA [None]
  - BRAIN OEDEMA [None]
  - BRAIN STEM HAEMORRHAGE [None]
  - CEREBROVASCULAR DISORDER [None]
  - COGNITIVE DISORDER [None]
  - ELECTROCARDIOGRAM ST-T CHANGE [None]
  - EYELID PTOSIS [None]
  - FATIGUE [None]
  - HEADACHE [None]
  - HYPERTENSIVE CRISIS [None]
  - HYPOAESTHESIA [None]
  - PARAESTHESIA [None]
  - WEIGHT INCREASED [None]
